FAERS Safety Report 9287355 (Version 3)
Quarter: 2013Q2

REPORT INFORMATION
  Report Type: Spontaneous
  Country: ES (occurrence: ES)
  Receive Date: 20130514
  Receipt Date: 20130528
  Transmission Date: 20140414
  Serious: Yes (Other)
  Sender: FDA-Public Use
  Company Number: ES-AMGEN-ESPSP2013030636

PATIENT
  Age: 4 Year
  Sex: Male

DRUGS (5)
  1. ENBREL [Suspect]
     Indication: JUVENILE IDIOPATHIC ARTHRITIS
     Dosage: 0.5 MG, WEEKLY
     Route: 058
     Dates: start: 201204
  2. ENBREL [Suspect]
     Dosage: 0.25 MG, UNK
     Dates: start: 20130422, end: 20130422
  3. ENBREL [Suspect]
     Dosage: 0.3 MG, UNK
     Dates: start: 20130429, end: 20130429
  4. METHOTREXATE [Concomitant]
     Dosage: UNK
  5. ACFOL [Concomitant]
     Dosage: UNK

REACTIONS (9)
  - Drug intolerance [Unknown]
  - Urticaria [Recovered/Resolved]
  - Skin disorder [Recovered/Resolved]
  - Rash [Recovered/Resolved]
  - Hypertension [Recovered/Resolved]
  - Erythema [Recovered/Resolved]
  - Hypersensitivity [Recovered/Resolved]
  - Flushing [Recovered/Resolved]
  - Injection site urticaria [Recovered/Resolved]
